FAERS Safety Report 4527810-4 (Version None)
Quarter: 2004Q4

REPORT INFORMATION
  Report Type: 
  Country: None (occurrence: None)
  Receive Date: 20041130
  Receipt Date: 20041020
  Transmission Date: 20050328
  Serious: No
  Sender: FDA-Public Use
  Company Number: WAES 0410USA03474

PATIENT
  Age: 55 Year
  Sex: Male

DRUGS (2)
  1. ZETIA [Suspect]
     Indication: LOW DENSITY LIPOPROTEIN INCREASED
     Dosage: PO
     Route: 048
  2. MOBIC [Concomitant]

REACTIONS (1)
  - JAUNDICE [None]
